FAERS Safety Report 6423784-X (Version None)
Quarter: 2009Q4

REPORT INFORMATION
  Report Type: 
  Country: None (occurrence: None)
  Receive Date: 20091028
  Receipt Date: 20091019
  Transmission Date: 20100525
  Serious: Yes (Hospitalization)
  Sender: FDA-Public Use
  Company Number: ALD1-UK-2009-0021

PATIENT
  Age: 69 Year
  Sex: Male

DRUGS (13)
  1. METHYLDOPA [Suspect]
     Indication: HYPERTENSION
     Dosage: 500 MG (3 IN 1 D) ORAL
     Route: 048
     Dates: start: 20090817, end: 20090902
  2. ADCAL-D3 (COLECALCIFEROL, CALCIUM CARBONATE) (COLECALCIFEROL, CALCIUM [Concomitant]
  3. ASPIRIN [Concomitant]
  4. ATENOLOL [Concomitant]
  5. ATORVASTATIN (ATORVASTATIN) (ATORVASTATIN) [Concomitant]
  6. CLOPIDOGREL HYDROGEN SULPHATE (CLOPIDOGREL) (CLOPIDOGREL) [Concomitant]
  7. DOXAZOSIN (DOXAZOSIN) (DOXAZOSIN) [Concomitant]
  8. FUROSEMIDE (FUROSEMIDE) (FUROSEMIDE) [Concomitant]
  9. ISOSORBIDE MONONITRATE (ISOSORBIDE MONONITRATE) (ISOSORBIDE MONONITRAT [Concomitant]
  10. RAMIPRIL [Concomitant]
  11. RANITIDINE (RANITIDINE) (RANITIDINE) [Concomitant]
  12. SPIRONOLACTONE [Concomitant]
  13. TAMSULOSIN (TAMSULOSIN) (TAMSULOSIN) [Concomitant]

REACTIONS (4)
  - MALAISE [None]
  - PANCYTOPENIA [None]
  - PULMONARY OEDEMA [None]
  - RENAL IMPAIRMENT [None]
